FAERS Safety Report 9566033 (Version 2)
Quarter: 2013Q4

REPORT INFORMATION
  Report Type: Spontaneous
  Country: US (occurrence: US)
  Receive Date: 20130930
  Receipt Date: 20131107
  Transmission Date: 20140711
  Serious: Yes (Other)
  Sender: FDA-Public Use
  Company Number: US-PFIZER INC-2013279773

PATIENT
  Age: 59 Year
  Sex: Female
  Weight: 61.22 kg

DRUGS (8)
  1. LYRICA [Suspect]
     Indication: COMPLEX REGIONAL PAIN SYNDROME
     Dosage: 75 MG, 2X/DAY
     Route: 048
  2. LYRICA [Suspect]
     Dosage: 75 MG, 2X/DAY
     Route: 048
     Dates: start: 201308
  3. PRILOSEC [Concomitant]
     Dosage: 20 MG, 1X/DAY
  4. ASPIRIN [Concomitant]
     Dosage: 81 MG, 1X/DAY
  5. ATENOLOL [Concomitant]
     Dosage: 50 MG, 1X/DAY
  6. FOSAMAX [Concomitant]
     Dosage: 70 MG, 1X/DAY
  7. TEGRETOL [Concomitant]
     Dosage: 200 MG, 2X/DAY
  8. VALTREX [Concomitant]
     Indication: OPHTHALMIC HERPES ZOSTER
     Dosage: 1GM ORAL TABLET THREE TIMES A DAY ON 1ST DAY, 1GM TWO TIMES A DAY EVERY 12 HOURS FOR NEXT 2 DAYS
     Route: 048

REACTIONS (10)
  - Off label use [Unknown]
  - Ophthalmic herpes zoster [Unknown]
  - Therapeutic response unexpected [Unknown]
  - Petit mal epilepsy [Recovered/Resolved]
  - Complex regional pain syndrome [Unknown]
  - Stress [Unknown]
  - Aura [Unknown]
  - Headache [Unknown]
  - Eye irritation [Unknown]
  - Lacrimation increased [Unknown]
